FAERS Safety Report 5378812-X (Version None)
Quarter: 2007Q3

REPORT INFORMATION
  Report Type: 
  Country: None (occurrence: None)
  Receive Date: 20070705
  Receipt Date: 20070703
  Transmission Date: 20080115
  Serious: Yes (Hospitalization)
  Sender: FDA-Public Use
  Company Number: US-SANOFI-SYNTHELABO-D01200703581

PATIENT
  Sex: Male
  Weight: 172.8 kg

DRUGS (8)
  1. ASA HIGH DOSE [Concomitant]
     Indication: ACUTE CORONARY SYNDROME
     Dosage: AT LEAST 300 MG D1; 300-325 MG FROM D2 TO D30
     Route: 048
     Dates: start: 20070515
  2. CLOPIDOGREL [Suspect]
     Indication: ACUTE CORONARY SYNDROME
     Dosage: 600 MG LD D1 FOLLOWED BY 150 MG FROM D2 TO D7; 75 MG FROM D8 TO 30
     Route: 048
     Dates: start: 20070515, end: 20070528
  3. CITALOPRAM HYDROBROMIDE [Concomitant]
  4. DEMADEX [Concomitant]
  5. NITROGLYCERIN [Concomitant]
  6. ALLOPURINOL [Concomitant]
  7. TOPROL-XL [Concomitant]
     Dosage: 25 MG
     Route: 065
  8. ALDACTONE [Concomitant]

REACTIONS (1)
  - RESPIRATORY DISTRESS [None]
